FAERS Safety Report 24897323 (Version 1)
Quarter: 2025Q1

REPORT INFORMATION
  Report Type: Spontaneous
  Country: US (occurrence: US)
  Receive Date: 20250129
  Receipt Date: 20250129
  Transmission Date: 20250409
  Serious: Yes (Hospitalization, Other)
  Sender: AMGEN
  Company Number: US-AMGEN-USASP2025012160

PATIENT
  Age: 69 Year
  Sex: Male
  Weight: 80 kg

DRUGS (9)
  1. FILGRASTIM [Suspect]
     Active Substance: FILGRASTIM
     Indication: Agranulocytosis
     Dosage: 3.75 MICROGRAM/KILOGRAM, QD, BEGUN ON DAY 3 AND CONTINUED FOR 8 DAYS
     Route: 058
  2. FILGRASTIM [Suspect]
     Active Substance: FILGRASTIM
     Indication: Off label use
     Dosage: 5.6 MICROGRAM/KILOGRAM, QD. ON DAY 10 THE DOSAGE OF FILGRASTIM WAS INCREASED
     Route: 058
  3. PIPERACILLIN AND TAZOBACTAM [Concomitant]
     Active Substance: PIPERACILLIN SODIUM\TAZOBACTAM SODIUM
     Indication: Agranulocytosis
     Dosage: 3.375 GRAM, Q4H
     Route: 040
  4. TOBRAMYCIN [Concomitant]
     Active Substance: TOBRAMYCIN
     Indication: Agranulocytosis
     Dosage: 180 MILLIGRAM, QD, BEGUN ON DAY 1
     Route: 040
  5. HEPARIN [Concomitant]
     Active Substance: HEPARIN SODIUM
     Indication: Prophylaxis
     Dosage: 5000 UNIT, BID, ON DAY 2
     Route: 058
  6. VANCOMYCIN [Concomitant]
     Active Substance: VANCOMYCIN
     Indication: Prophylaxis
     Dosage: 1 GRAM, Q12H, EVERY 12 HOURS ON DAY 4
     Route: 040
  7. FLUCONAZOLE [Concomitant]
     Active Substance: FLUCONAZOLE
     Indication: Pyrexia
     Dosage: 200 MILLIGRAM, QD, ON DAY 7
     Route: 040
  8. FLUCONAZOLE [Concomitant]
     Active Substance: FLUCONAZOLE
     Indication: Neutropenia
  9. AMPHOTERICIN B [Concomitant]
     Active Substance: AMPHOTERICIN B
     Indication: Neutropenia
     Route: 065

REACTIONS (7)
  - Neutropenia [Recovered/Resolved]
  - Fungal endocarditis [Recovered/Resolved]
  - Neutrophil count decreased [Recovered/Resolved]
  - White blood cell count decreased [Recovered/Resolved]
  - Thrombocytopenia [Recovered/Resolved]
  - Off label use [Unknown]
  - White blood cell count increased [Recovered/Resolved]
